FAERS Safety Report 8100630-X (Version None)
Quarter: 2012Q1

REPORT INFORMATION
  Report Type: 
  Country: None (occurrence: None)
  Receive Date: 20120131
  Receipt Date: 20120123
  Transmission Date: 20120608
  Serious: Yes (Hospitalization, Other)
  Sender: FDA-Public Use
  Company Number: JP-PFIZER INC-2011278356

PATIENT
  Age: 65 Year
  Sex: Male

DRUGS (6)
  1. CILOSTAZOL [Suspect]
     Indication: CEREBRAL INFARCTION
     Dosage: 100 MG, UNK
     Route: 048
     Dates: start: 20111006, end: 20111021
  2. AMLODIPINE [Suspect]
     Dosage: 1 DF, 1X/DAY
     Route: 048
     Dates: start: 20111124
  3. AMLODIPINE [Suspect]
     Dosage: UNK
     Route: 048
     Dates: start: 20120112
  4. PRAVASTATIN SODIUM [Suspect]
     Indication: HYPERLIPIDAEMIA
     Dosage: 10 MG, UNK
     Route: 048
     Dates: start: 20111006, end: 20111021
  5. MICARDIS [Suspect]
     Indication: HYPERTENSION
     Dosage: UNK MG, UNK
     Route: 048
     Dates: start: 20111006, end: 20111021
  6. AMLODIPINE [Suspect]
     Indication: HYPERTENSION
     Dosage: 5 MG, UNK
     Route: 048
     Dates: start: 20111013, end: 20111021

REACTIONS (1)
  - INTERSTITIAL LUNG DISEASE [None]
